FAERS Safety Report 20189767 (Version 1)
Quarter: 2021Q4

REPORT INFORMATION
  Report Type: Spontaneous
  Country: US (occurrence: US)
  Receive Date: 20211215
  Receipt Date: 20211215
  Transmission Date: 20220303
  Serious: No
  Sender: FDA-Public Use
  Company Number: US-REGENERON PHARMACEUTICALS, INC.-2021-29883

PATIENT

DRUGS (2)
  1. EYLEA [Suspect]
     Active Substance: AFLIBERCEPT
     Indication: Product used for unknown indication
     Dosage: LEFT EYE, ONCE A MONTH AND MOVED TO EVERY 6 WEEKS
     Route: 031
     Dates: start: 202009
  2. EYLEA [Suspect]
     Active Substance: AFLIBERCEPT
     Dosage: RIGHT EYE
     Route: 031
     Dates: start: 202101

REACTIONS (4)
  - Dyspnoea [Unknown]
  - Eye pain [Unknown]
  - Vitreous floaters [Unknown]
  - Drug ineffective [Unknown]
